FAERS Safety Report 8012744-3 (Version None)
Quarter: 2011Q4

REPORT INFORMATION
  Report Type: 
  Country: None (occurrence: None)
  Receive Date: 20111223
  Receipt Date: 20111223
  Transmission Date: 20120403
  Serious: Yes (Hospitalization, Other)
  Sender: FDA-Public Use
  Company Number: None

PATIENT
  Sex: Male

DRUGS (1)
  1. SUTENT [Suspect]
     Indication: RENAL CANCER
     Dosage: 50MG DAILY ORAL
     Route: 048
     Dates: start: 20110923, end: 20111215

REACTIONS (2)
  - MUCOSAL INFLAMMATION [None]
  - GASTROINTESTINAL HAEMORRHAGE [None]
